FAERS Safety Report 25170872 (Version 1)
Quarter: 2025Q2

REPORT INFORMATION
  Report Type: Spontaneous
  Country: US (occurrence: US)
  Receive Date: 20250408
  Receipt Date: 20250408
  Transmission Date: 20250717
  Serious: Yes (Life-Threatening, Hospitalization, Other)
  Sender: APOTEX
  Company Number: US-APOTEX-2025AP004260

PATIENT
  Age: 65 Year
  Sex: Female

DRUGS (1)
  1. METFORMIN [Suspect]
     Active Substance: METFORMIN HYDROCHLORIDE
     Indication: Type 2 diabetes mellitus
     Route: 065

REACTIONS (5)
  - Anuria [Not Recovered/Not Resolved]
  - Drug level increased [Unknown]
  - Encephalopathy [Recovering/Resolving]
  - Lactic acidosis [Recovered/Resolved]
  - Shock [Recovered/Resolved]
